FAERS Safety Report 11259487 (Version 1)
Quarter: 2015Q3

REPORT INFORMATION
  Report Type: Report from Study
  Country: DE (occurrence: DE)
  Receive Date: 20150710
  Receipt Date: 20150710
  Transmission Date: 20151125
  Serious: Yes (Other)
  Sender: FDA-Public Use
  Company Number: DE-MEDA-2015070003

PATIENT
  Age: 21 Year
  Sex: Male

DRUGS (1)
  1. D-PENICILLAMINE [Suspect]
     Active Substance: PENICILLAMINE
     Indication: HEPATO-LENTICULAR DEGENERATION
     Dates: start: 1993, end: 2004

REACTIONS (1)
  - Seronegative arthritis [Unknown]

NARRATIVE: CASE EVENT DATE: 2004
